FAERS Safety Report 4354091-7 (Version None)
Quarter: 2004Q2

REPORT INFORMATION
  Report Type: 
  Country: None (occurrence: None)
  Receive Date: 20040505
  Receipt Date: 20040505
  Transmission Date: 20050107
  Serious: Yes (Other)
  Sender: FDA-Public Use
  Company Number: None

PATIENT
  Age: 85 Year
  Sex: Female

DRUGS (1)
  1. MACROBID [Suspect]
     Indication: URINARY TRACT INFECTION
     Dosage: BID ^0:
     Dates: start: 20031108

REACTIONS (3)
  - HALLUCINATION [None]
  - HALLUCINATION, VISUAL [None]
  - INSOMNIA [None]
